FAERS Safety Report 23602121 (Version 3)
Quarter: 2024Q2

REPORT INFORMATION
  Report Type: Spontaneous
  Country: US (occurrence: US)
  Receive Date: 20240306
  Receipt Date: 20240516
  Transmission Date: 20240716
  Serious: No
  Sender: FDA-Public Use
  Company Number: US-SA-SAC20240229000171

PATIENT
  Age: 21 Year
  Sex: Female
  Weight: 53.97 kg

DRUGS (7)
  1. DUPIXENT [Suspect]
     Active Substance: DUPILUMAB
     Indication: Dermatitis atopic
     Dosage: 300 MG, QOW
     Route: 058
     Dates: start: 20230530
  2. IBUPROFEN [Concomitant]
     Active Substance: IBUPROFEN
  3. VITAMINS NOS [Concomitant]
     Active Substance: VITAMINS
  4. METHOCARBAMOL [Concomitant]
     Active Substance: METHOCARBAMOL
  5. NITROFURANTOIN [Concomitant]
     Active Substance: NITROFURANTOIN
  6. QUETIAPINE FUMARATE [Concomitant]
     Active Substance: QUETIAPINE FUMARATE
  7. TRIAMCINOLONE ACETONIDE [Concomitant]
     Active Substance: TRIAMCINOLONE ACETONIDE
     Indication: Dermatitis atopic
     Dosage: 200MG

REACTIONS (8)
  - Urinary tract infection [Unknown]
  - Back pain [Unknown]
  - Hypotension [Unknown]
  - Menstruation delayed [Unknown]
  - Skin burning sensation [Unknown]
  - Dermatitis atopic [Recovering/Resolving]
  - Injection site pain [Unknown]
  - Product preparation error [Unknown]

NARRATIVE: CASE EVENT DATE: 20240201
